FAERS Safety Report 6196905-4 (Version None)
Quarter: 2009Q2

REPORT INFORMATION
  Report Type: 
  Country: None (occurrence: None)
  Receive Date: 20090518
  Receipt Date: 20090518
  Transmission Date: 20091009
  Serious: Yes (Hospitalization)
  Sender: FDA-Public Use
  Company Number: None

PATIENT
  Age: 87 Year
  Sex: Female
  Weight: 78 kg

DRUGS (23)
  1. CARAMUNE [Suspect]
     Indication: MYASTHENIA GRAVIS
     Dosage: IV DRIP
     Route: 041
  2. OMEPRAZOLE [Concomitant]
  3. VESICARE [Concomitant]
  4. PREDNISONE [Concomitant]
  5. MULTIPLE VITAMINS [Concomitant]
  6. LORCET-HD [Concomitant]
  7. XANADERM [Concomitant]
  8. LANOXIN [Concomitant]
  9. POTASSIUM CHLORIDE [Concomitant]
  10. LASIX [Concomitant]
  11. OYCONTIN [Concomitant]
  12. IMURAN [Concomitant]
  13. MESTINON [Concomitant]
  14. SYNTHROID [Concomitant]
  15. NORVASC [Concomitant]
  16. LEXAPRO [Concomitant]
  17. BONIVA [Concomitant]
  18. COUMADIN [Concomitant]
  19. SALINE NASAL SPRAY [Concomitant]
  20. COLACE [Concomitant]
  21. RANITIDINE [Concomitant]
  22. LISINOPRIL [Concomitant]
  23. MARCBID [Concomitant]

REACTIONS (1)
  - RENAL FAILURE ACUTE [None]
